FAERS Safety Report 9730264 (Version 3)
Quarter: 2014Q1

REPORT INFORMATION
  Report Type: Report from Study
  Country: US (occurrence: US)
  Receive Date: 20131202
  Receipt Date: 20140217
  Transmission Date: 20141002
  Serious: Yes (Other)
  Sender: FDA-Public Use
  Company Number: PHEH2013US022015

PATIENT
  Age: 27 Year
  Sex: Female
  Weight: 81.63 kg

DRUGS (13)
  1. GILENYA [Suspect]
     Indication: MULTIPLE SCLEROSIS
     Dosage: 0.5 MG, QD
     Route: 048
     Dates: start: 20130919
  2. ADDERALL [Concomitant]
     Indication: FATIGUE
     Dosage: 1 DF, UNK
     Route: 048
     Dates: start: 20110915, end: 20130919
  3. LORAZEPAM [Concomitant]
     Dosage: 0.5 MG, UNK
     Route: 048
     Dates: start: 20131202, end: 20131014
  4. MINOCYCLINE [Concomitant]
     Dosage: 100 MG, QD
     Route: 048
     Dates: start: 20131124
  5. PROHANCE                           /01180801/ [Concomitant]
     Dosage: UNK
     Route: 065
     Dates: start: 20131114, end: 20131114
  6. PROHANCE                           /01180801/ [Concomitant]
     Dosage: UNK
  7. REQUIP [Concomitant]
     Dosage: 1 MG, UNK
     Route: 048
     Dates: start: 20120203, end: 20120503
  8. REQUIP [Concomitant]
     Dosage: 1 MG, UNK
     Route: 048
     Dates: start: 20120601, end: 20130923
  9. REQUIP [Concomitant]
     Dosage: 1 MG, UNK
     Route: 048
     Dates: start: 20130923, end: 20131014
  10. PREDNISONE [Concomitant]
     Dosage: 20 MG, QD
     Route: 048
     Dates: start: 20130821, end: 20130919
  11. ARICEPT [Concomitant]
     Dosage: 10 MG, UNK
     Route: 048
     Dates: end: 20110910
  12. ARICEPT [Concomitant]
     Dosage: 23 MG, UNK
     Route: 048
     Dates: start: 20131106
  13. ARICEPT [Concomitant]
     Dosage: 10 MG, UNK
     Route: 048
     Dates: start: 20120904, end: 20130923

REACTIONS (8)
  - Multiple sclerosis [Not Recovered/Not Resolved]
  - Central nervous system lesion [Not Recovered/Not Resolved]
  - Thinking abnormal [Not Recovered/Not Resolved]
  - Communication disorder [Not Recovered/Not Resolved]
  - Multiple sclerosis relapse [Recovering/Resolving]
  - Memory impairment [Recovering/Resolving]
  - Hyporeflexia [Unknown]
  - Ataxia [Unknown]
